FAERS Safety Report 6812130-5 (Version None)
Quarter: 2010Q3

REPORT INFORMATION
  Report Type: 
  Country: None (occurrence: None)
  Receive Date: 20100701
  Receipt Date: 20091001
  Transmission Date: 20110219
  Serious: Yes (Hospitalization)
  Sender: FDA-Public Use
  Company Number: US-ABBOTT-09P-163-0600151-00

PATIENT
  Age: 48 Year
  Sex: Male

DRUGS (25)
  1. NORVIR [Suspect]
     Indication: HIV INFECTION
     Route: 048
     Dates: start: 20050821, end: 20080307
  2. NORVIR [Suspect]
     Route: 048
     Dates: start: 20080309
  3. RALTEGRAVIR [Suspect]
     Indication: HIV INFECTION
     Route: 048
     Dates: start: 20060530, end: 20080307
  4. RALTEGRAVIR [Suspect]
     Route: 048
     Dates: start: 20080309
  5. ATAZANAVIR [Suspect]
     Indication: HIV INFECTION
     Dates: start: 20070208, end: 20080307
  6. ATAZANAVIR [Suspect]
     Dates: start: 20080309
  7. ATAZANAVIR SULFATE [Suspect]
     Indication: HIV INFECTION
     Route: 048
     Dates: start: 20070208, end: 20080307
  8. ATAZANAVIR SULFATE [Suspect]
     Route: 048
     Dates: start: 20080309
  9. ZIDOVUDINE [Suspect]
     Indication: HIV INFECTION
     Route: 048
     Dates: start: 20050504, end: 20080307
  10. ZIDOVUDINE [Suspect]
     Route: 048
     Dates: start: 20080309
  11. EMTRICITABINE [Suspect]
     Indication: HIV INFECTION
     Route: 048
     Dates: start: 20060310, end: 20080307
  12. EMTRICITABINE [Suspect]
     Route: 048
     Dates: start: 20080309
  13. OXYCODONE HCL [Concomitant]
     Indication: PRODUCT USED FOR UNKNOWN INDICATION
     Dates: start: 20061222, end: 20080307
  14. OXYCODONE HCL [Concomitant]
     Dates: start: 20070726, end: 20080307
  15. OXYCODONE HCL [Concomitant]
     Dates: start: 20080309
  16. OXYCODONE HCL [Concomitant]
     Indication: PRODUCT USED FOR UNKNOWN INDICATION
     Dates: start: 20070726, end: 20080307
  17. OXYCODONE HCL [Concomitant]
     Dates: start: 20080309
  18. PENTAMIDINE ISETHIONATE [Concomitant]
     Indication: PRODUCT USED FOR UNKNOWN INDICATION
     Dates: start: 20030428, end: 20080307
  19. PENTAMIDINE ISETHIONATE [Concomitant]
     Dates: start: 20080309
  20. PIROXICAM [Concomitant]
     Indication: PRODUCT USED FOR UNKNOWN INDICATION
     Dates: start: 20061222, end: 20080307
  21. PIROXICAM [Concomitant]
     Dates: start: 20080309
  22. PROMETHAZINE [Concomitant]
     Indication: PRODUCT USED FOR UNKNOWN INDICATION
     Dates: start: 20070726, end: 20080307
  23. PROMETHAZINE [Concomitant]
     Dates: start: 20080309
  24. SENNA [Concomitant]
     Indication: PRODUCT USED FOR UNKNOWN INDICATION
     Dates: start: 20061222, end: 20080307
  25. SENNA [Concomitant]
     Dates: start: 20080309

REACTIONS (1)
  - PANCREATITIS [None]
